FAERS Safety Report 12200575 (Version 3)
Quarter: 2017Q1

REPORT INFORMATION
  Report Type: Spontaneous
  Country: US (occurrence: US)
  Receive Date: 20160322
  Receipt Date: 20170331
  Transmission Date: 20170428
  Serious: No
  Sender: FDA-Public Use
  Company Number: US-SEPTODONT-201503130

PATIENT
  Age: 50 Year
  Sex: Male

DRUGS (5)
  1. LIDOCAINE/PRILOCAINE [Concomitant]
     Route: 061
     Dates: start: 20151211, end: 20151211
  2. LIDOCAINE HYDROCHLORIDE AND EPINEPHRINE BITARTRATE [Suspect]
     Active Substance: EPINEPHRINE BITARTRATE\LIDOCAINE HYDROCHLORIDE
     Indication: LOCAL ANAESTHESIA
     Route: 004
     Dates: start: 20151211, end: 20151211
  3. SEPTOCAINE AND EPINEPHRINE [Suspect]
     Active Substance: ARTICAINE HYDROCHLORIDE\EPINEPHRINE BITARTRATE
     Indication: LOCAL ANAESTHESIA
     Dosage: 4 CARPULES
     Route: 004
     Dates: start: 20151211, end: 20151211
  4. CITANEST PLAIN [Suspect]
     Active Substance: PRILOCAINE HYDROCHLORIDE
     Indication: LOCAL ANAESTHESIA
     Route: 004
     Dates: start: 20151211, end: 20151211
  5. ADVIL [Concomitant]
     Active Substance: IBUPROFEN

REACTIONS (3)
  - Dyspnoea [Recovered/Resolved]
  - Heart rate increased [Recovered/Resolved]
  - Nervousness [Recovered/Resolved]

NARRATIVE: CASE EVENT DATE: 20151211
